FAERS Safety Report 5965596-7 (Version None)
Quarter: 2008Q4

REPORT INFORMATION
  Report Type: 
  Country: None (occurrence: None)
  Receive Date: 20081121
  Receipt Date: 20081110
  Transmission Date: 20090506
  Serious: Yes (Life-Threatening, Hospitalization)
  Sender: FDA-Public Use
  Company Number: 2008GR_BP0669

PATIENT
  Age: 37 Year
  Sex: Female

DRUGS (1)
  1. LEVONORGESTREL [Suspect]
     Indication: POST COITAL CONTRACEPTION
     Dosage: (1.5 MG, 1 TABLET, SINGLE DOSE) ORAL
     Route: 048
     Dates: start: 20080713, end: 20080713

REACTIONS (7)
  - ENCEPHALITIS HERPES [None]
  - EYE HAEMORRHAGE [None]
  - HAEMATOMA [None]
  - HEADACHE [None]
  - HEMIPARESIS [None]
  - RETINAL DETACHMENT [None]
  - THROMBOTIC THROMBOCYTOPENIC PURPURA [None]
